FAERS Safety Report 17295338 (Version 1)
Quarter: 2020Q1

REPORT INFORMATION
  Report Type: Report from Study
  Country: US (occurrence: US)
  Receive Date: 20200121
  Receipt Date: 20200121
  Transmission Date: 20200409
  Serious: Yes (Hospitalization)
  Sender: FDA-Public Use
  Company Number: US-BAXTER-2020BAX000906

PATIENT
  Age: 3 Year
  Sex: Male
  Weight: 14 kg

DRUGS (11)
  1. VINCRISTINE SULFATE. [Suspect]
     Active Substance: VINCRISTINE SULFATE
     Dosage: LAST ADMINISTERED DATE BEFORE EVENT
     Route: 042
     Dates: start: 20191123, end: 20191123
  2. DACTINOMYCIN [Suspect]
     Active Substance: DACTINOMYCIN
     Dosage: LAST DOSE ADMINISTERED PRIOR TO EVENT
     Route: 042
     Dates: start: 20191123, end: 20191123
  3. CYCLOPHOSPHAMIDE FOR INJECTION, USP [Suspect]
     Active Substance: CYCLOPHOSPHAMIDE
     Indication: EMBRYONAL RHABDOMYOSARCOMA
     Dosage: IV OVER 60 MINUTES, TOTAL DOSE: 745 MG
     Route: 042
  4. TEMSIROLIMUS. [Suspect]
     Active Substance: TEMSIROLIMUS
     Indication: EMBRYONAL RHABDOMYOSARCOMA
     Dosage: IV OVER 30-60 MINUTES, TOTAL DOSE: 9 MG
     Route: 042
  5. CAMPTOSAR [Suspect]
     Active Substance: IRINOTECAN HYDROCHLORIDE
     Indication: EMBRYONAL RHABDOMYOSARCOMA
     Dosage: IV OVER 90 MINUTES, TOTAL DOSE: 0 MG
     Route: 042
  6. CYCLOPHOSPHAMIDE FOR INJECTION, USP [Suspect]
     Active Substance: CYCLOPHOSPHAMIDE
     Dosage: LAST DOSE ADMINISTERED PRIOR TO EVENT
     Route: 042
     Dates: start: 20191123, end: 20191123
  7. TEMSIROLIMUS. [Suspect]
     Active Substance: TEMSIROLIMUS
     Dosage: LAST DOSE ADMINISTERED PRIOR TO EVENT
     Route: 042
     Dates: start: 20191123, end: 20191123
  8. VINCRISTINE SULFATE. [Suspect]
     Active Substance: VINCRISTINE SULFATE
     Indication: EMBRYONAL RHABDOMYOSARCOMA
     Dosage: IV OVER 1 MINUTE OR INFUSION VIA MINI BAG, TOTAL DOSE: 0.9 MG
     Route: 042
  9. DACTINOMYCIN [Suspect]
     Active Substance: DACTINOMYCIN
     Indication: EMBRYONAL RHABDOMYOSARCOMA
     Dosage: IV OVER 1-5 MINUTES, TOTAL DOSE: 0.3 MG
     Route: 042
  10. CAMPTOSAR [Suspect]
     Active Substance: IRINOTECAN HYDROCHLORIDE
     Dosage: LAST DOSE ADMINISTERED PRIOR TO EVENT
     Route: 042
     Dates: start: 20191028, end: 20191028
  11. DACTINOMYCIN [Suspect]
     Active Substance: DACTINOMYCIN
     Dosage: DOSE REDUCED
     Route: 042

REACTIONS (1)
  - Lethargy [Recovered/Resolved]

NARRATIVE: CASE EVENT DATE: 20191127
